FAERS Safety Report 19356718 (Version 1)
Quarter: 2021Q2

REPORT INFORMATION
  Report Type: Spontaneous
  Country: US (occurrence: US)
  Receive Date: 20210602
  Receipt Date: 20210602
  Transmission Date: 20210717
  Serious: No
  Sender: FDA-Public Use
  Company Number: None

PATIENT
  Age: 72 Year
  Sex: Male
  Weight: 68 kg

DRUGS (1)
  1. FERUMOXYTOL (FERUMOXYTOL 30MG (IRON) ML INJ) [Suspect]
     Active Substance: FERUMOXYTOL
     Indication: IRON DEFICIENCY ANAEMIA
     Route: 042
     Dates: start: 20200727, end: 20200803

REACTIONS (1)
  - Hypotension [None]

NARRATIVE: CASE EVENT DATE: 20200803
